FAERS Safety Report 7275683-1 (Version None)
Quarter: 2011Q1

REPORT INFORMATION
  Report Type: 
  Country: None (occurrence: None)
  Receive Date: 20110202
  Receipt Date: 20110202
  Transmission Date: 20110831
  Serious: Yes (Hospitalization)
  Sender: FDA-Public Use
  Company Number: None

PATIENT

DRUGS (1)
  1. METOCLOPRAMIDE HCL [Suspect]
     Indication: GASTRIC HYPOMOTILITY

REACTIONS (1)
  - ELECTROCARDIOGRAM QT PROLONGED [None]
